FAERS Safety Report 13591794 (Version 1)
Quarter: 2017Q2

REPORT INFORMATION
  Report Type: Spontaneous
  Country: US (occurrence: US)
  Receive Date: 20170530
  Receipt Date: 20170530
  Transmission Date: 20170830
  Serious: Yes (Other)
  Sender: FDA-Public Use
  Company Number: US-GLAXOSMITHKLINE-US2017080448

PATIENT

DRUGS (1)
  1. NICOTINE POLACRILEX [Suspect]
     Active Substance: NICOTINE
     Indication: SMOKING CESSATION THERAPY
     Dosage: UNK
     Route: 048

REACTIONS (11)
  - Haemorrhage [Unknown]
  - Abdominal distension [Unknown]
  - Sneezing [Unknown]
  - Oropharyngeal pain [Unknown]
  - Hypersensitivity [Unknown]
  - Cough [Unknown]
  - Nausea [Unknown]
  - Infection [Unknown]
  - Sinus disorder [Unknown]
  - Nasal congestion [Unknown]
  - Pruritus [Unknown]
